FAERS Safety Report 17096053 (Version 1)
Quarter: 2019Q4

REPORT INFORMATION
  Report Type: Spontaneous
  Country: DE (occurrence: DE)
  Receive Date: 20191202
  Receipt Date: 20191202
  Transmission Date: 20200122
  Serious: Yes (Hospitalization)
  Sender: FDA-Public Use
  Company Number: DE-UCBSA-2019049058

PATIENT
  Age: 80 Year
  Sex: Male
  Weight: 89 kg

DRUGS (4)
  1. XARELTO [Interacting]
     Active Substance: RIVAROXABAN
     Indication: ATRIAL FIBRILLATION
     Dosage: 20 MG, QD
  2. KEPPRA [Interacting]
     Active Substance: LEVETIRACETAM
     Indication: OFF LABEL USE
  3. GALANTAMIN [Interacting]
     Active Substance: GALANTAMINE
     Indication: PRODUCT USED FOR UNKNOWN INDICATION
     Dosage: 24 MG, QD
  4. KEPPRA [Suspect]
     Active Substance: LEVETIRACETAM
     Indication: POST STROKE EPILEPSY
     Dosage: 500 MILLIGRAM, 2X/DAY (BID)

REACTIONS (4)
  - Monoplegia [Recovering/Resolving]
  - Drug interaction [Recovering/Resolving]
  - Ischaemic stroke [Recovering/Resolving]
  - Off label use [Unknown]

NARRATIVE: CASE EVENT DATE: 20190808
